FAERS Safety Report 7363340-2 (Version None)
Quarter: 2011Q1

REPORT INFORMATION
  Report Type: 
  Country: None (occurrence: None)
  Receive Date: 20110321
  Receipt Date: 20110309
  Transmission Date: 20110831
  Serious: No
  Sender: FDA-Public Use
  Company Number: US-JNJFOC-20110305222

PATIENT

DRUGS (1)
  1. INVEGA SUSTENNA [Suspect]
     Indication: ILL-DEFINED DISORDER
     Route: 030

REACTIONS (1)
  - BLOOD GLUCOSE INCREASED [None]
